FAERS Safety Report 4289631-X (Version None)
Quarter: 2004Q1

REPORT INFORMATION
  Report Type: 
  Country: None (occurrence: None)
  Receive Date: 20040126
  Receipt Date: 20031103
  Transmission Date: 20041129
  Serious: No
  Sender: FDA-Public Use
  Company Number: USA031048709

PATIENT
  Age: 73 Year
  Sex: Female
  Weight: 36 kg

DRUGS (20)
  1. FORTEO [Suspect]
     Indication: OSTEOPOROSIS
     Dates: start: 20030829
  2. VIOXX [Concomitant]
  3. MULTIVITAMIN [Concomitant]
  4. LEVOTEROID [Concomitant]
  5. DURAGESIC [Concomitant]
  6. STOOL SOFTENER [Concomitant]
  7. QUININE [Concomitant]
  8. NYSTATIN [Concomitant]
  9. MILK OF MAGNESIA TAB [Concomitant]
  10. DURAGESIC [Concomitant]
  11. COMBIVENT [Concomitant]
  12. ADVAIR DISKUS 100/50 [Concomitant]
  13. ALBUTEROL [Concomitant]
  14. MULTIVITAMIN [Concomitant]
  15. VITAMIN C [Concomitant]
  16. VITAMIN E [Concomitant]
  17. CALTRATE 600 PLUS VITAMIN D [Concomitant]
  18. BIAXIN [Concomitant]
  19. RIFAMPIN [Concomitant]
  20. ETHAMBUTOL HCL [Concomitant]

REACTIONS (4)
  - HOT FLUSH [None]
  - HYPERHIDROSIS [None]
  - HYPERSOMNIA [None]
  - ILL-DEFINED DISORDER [None]
